FAERS Safety Report 18126981 (Version 2)
Quarter: 2020Q3

REPORT INFORMATION
  Report Type: Report from Study
  Country: JP (occurrence: JP)
  Receive Date: 20200810
  Receipt Date: 20200922
  Transmission Date: 20201103
  Serious: Yes (Other)
  Sender: FDA-Public Use
  Company Number: JP-CELLTRION INC.-2020JP024952

PATIENT

DRUGS (8)
  1. CT?P13 [Suspect]
     Active Substance: INFLIXIMAB-DYYB
     Dosage: 235 MILLIGRAM (WEIGHT: 46.9 KG)
     Route: 041
     Dates: start: 20190921, end: 20190921
  2. MESALAZINE [Concomitant]
     Active Substance: MESALAMINE
     Dosage: 4800 MILLIGRAM, DAILY
     Route: 048
     Dates: start: 20170813
  3. AZATHIOPRINE. [Concomitant]
     Active Substance: AZATHIOPRINE
     Dosage: 50 MILLIGRAM, DAILY
     Route: 048
     Dates: start: 20180918, end: 20190723
  4. CT?P13 [Suspect]
     Active Substance: INFLIXIMAB-DYYB
     Indication: COLITIS ULCERATIVE
     Dosage: 230 MILLIGRAM (WEIGHT: 46.3 KG)
     Route: 041
     Dates: start: 20181104, end: 20181104
  5. SALAZOSULFAPYRIDINE [Concomitant]
     Active Substance: SULFASALAZINE
     Dosage: 3000 MILLIGRAM, DAILY
     Route: 048
  6. PREDNISOLONE. [Concomitant]
     Active Substance: PREDNISOLONE
     Dosage: UNK
     Route: 048
  7. BUDESONIDE. [Concomitant]
     Active Substance: BUDESONIDE
     Indication: COLITIS ULCERATIVE
     Dosage: 4 MILLIGRAM, DAILY
     Route: 054
     Dates: start: 20190522, end: 20190703
  8. AZATHIOPRINE. [Concomitant]
     Active Substance: AZATHIOPRINE
     Indication: COLITIS ULCERATIVE
     Dosage: 75 MILLIGRAM, DAILY
     Route: 048
     Dates: start: 20190724

REACTIONS (8)
  - Chronic gastritis [Not Recovered/Not Resolved]
  - Gastritis erosive [Recovered/Resolved]
  - Malaise [Unknown]
  - Underdose [Unknown]
  - Product use issue [Unknown]
  - Oral candidiasis [Unknown]
  - Overdose [Unknown]
  - Influenza [Recovered/Resolved]

NARRATIVE: CASE EVENT DATE: 2019
